FAERS Safety Report 8798000 (Version 2)
Quarter: 2012Q4

REPORT INFORMATION
  Report Type: 
  Country: US (occurrence: US)
  Receive Date: 20120920
  Receipt Date: 20121017
  Transmission Date: 20130627
  Serious: No
  Sender: FDA-Public Use
  Company Number: US-BIOGENIDEC-2012BI037698

PATIENT
  Sex: Female

DRUGS (1)
  1. AVONEX [Suspect]
     Indication: MULTIPLE SCLEROSIS
     Route: 030
     Dates: start: 19980712

REACTIONS (5)
  - Erythema [Not Recovered/Not Resolved]
  - Muscle mass [Not Recovered/Not Resolved]
  - General symptom [Unknown]
  - Injection site pain [Not Recovered/Not Resolved]
  - Myalgia [Unknown]
